FAERS Safety Report 6526640-1 (Version None)
Quarter: 2010Q1

REPORT INFORMATION
  Report Type: 
  Country: None (occurrence: None)
  Receive Date: 20100105
  Receipt Date: 20091222
  Transmission Date: 20100710
  Serious: Yes (Hospitalization)
  Sender: FDA-Public Use
  Company Number: DE-AMGEN-US382461

PATIENT
  Age: 74 Year
  Sex: Female

DRUGS (2)
  1. ENBREL [Suspect]
     Indication: RHEUMATOID ARTHRITIS
     Dosage: FIRST ADMINISTARTION: 50MG
     Route: 058
     Dates: start: 20091012, end: 20091012
  2. NOVALGIN [Concomitant]
     Dosage: UNKNOWN

REACTIONS (1)
  - CIRCULATORY COLLAPSE [None]
